FAERS Safety Report 25780870 (Version 1)
Quarter: 2025Q3

REPORT INFORMATION
  Report Type: Report from Study
  Country: US (occurrence: US)
  Receive Date: 20250909
  Receipt Date: 20250909
  Transmission Date: 20251021
  Serious: Yes (Other)
  Sender: BIOGEN
  Company Number: US-BIOGEN-2025BI01323256

PATIENT
  Sex: Female

DRUGS (1)
  1. ZURZUVAE [Suspect]
     Active Substance: ZURANOLONE
     Indication: Perinatal depression
     Dosage: TAKE 2 CAPSULES (50 MG) ONCE DAILY IN THE EVENING
     Route: 050

REACTIONS (5)
  - Suicidal ideation [Unknown]
  - Poor quality sleep [Unknown]
  - Depression [Unknown]
  - Panic attack [Unknown]
  - Anxiety [Unknown]
